FAERS Safety Report 18172297 (Version 1)
Quarter: 2020Q3

REPORT INFORMATION
  Report Type: Spontaneous
  Country: ES (occurrence: ES)
  Receive Date: 20200819
  Receipt Date: 20200819
  Transmission Date: 20201103
  Serious: Yes (Life-Threatening, Hospitalization)
  Sender: FDA-Public Use
  Company Number: ES-MYLANLABS-2020M1071090

PATIENT
  Age: 39 Year
  Sex: Male

DRUGS (4)
  1. PARACETAMOL [Suspect]
     Active Substance: ACETAMINOPHEN
     Indication: PYREXIA
     Dosage: 1 COMP 1 TABLET PER WEEK
     Route: 048
     Dates: start: 20190213, end: 20190219
  2. IBUPROFEN. [Suspect]
     Active Substance: IBUPROFEN
     Indication: PYREXIA
     Dosage: 3?4 COMP DIA
     Route: 048
     Dates: start: 20190213, end: 20190219
  3. AMOXICILLIN/CLAVULANIC ACID [Suspect]
     Active Substance: AMOXICILLIN\CLAVULANIC ACID
     Indication: EAR PAIN
     Dosage: 850 MILLIGRAM, BID
     Route: 048
     Dates: start: 20190217, end: 20190218
  4. METAMIZOL                          /06276701/ [Suspect]
     Active Substance: METAMIZOLE
     Indication: PYREXIA
     Dosage: 1 COMP EN UNA SEMANA
     Route: 048
     Dates: start: 20190213, end: 20190219

REACTIONS (1)
  - Agranulocytosis [Recovered/Resolved]

NARRATIVE: CASE EVENT DATE: 20190219
